FAERS Safety Report 18629657 (Version 1)
Quarter: 2020Q4

REPORT INFORMATION
  Report Type: Spontaneous
  Country: US (occurrence: US)
  Receive Date: 20201217
  Receipt Date: 20201217
  Transmission Date: 20210114
  Serious: Yes (Hospitalization, Other)
  Sender: FDA-Public Use
  Company Number: US-JNJFOC-20201220820

PATIENT
  Age: 29 Year
  Sex: Female

DRUGS (1)
  1. TOPIRAMATE. [Suspect]
     Active Substance: TOPIRAMATE
     Indication: PRODUCT USED FOR UNKNOWN INDICATION
     Route: 048

REACTIONS (5)
  - Retinal detachment [Recovered/Resolved]
  - Retinal haemorrhage [Recovered/Resolved]
  - Anaemia [Recovered/Resolved]
  - Angle closure glaucoma [Recovered/Resolved]
  - Thrombocytopenia [Recovered/Resolved]
